FAERS Safety Report 11458258 (Version 1)
Quarter: 2015Q3

REPORT INFORMATION
  Report Type: Spontaneous
  Country: US (occurrence: None)
  Receive Date: 20150903
  Receipt Date: 20150903
  Transmission Date: 20151125
  Serious: Yes (Other)
  Sender: FDA-Public Use
  Company Number: None

PATIENT
  Sex: Male
  Weight: 70.1 kg

DRUGS (3)
  1. LAMICTAL ODT [Suspect]
     Active Substance: LAMOTRIGINE
     Indication: COMPLEX PARTIAL SEIZURES
     Dosage: 100MG  2XDAY  ORALLY
     Route: 048
     Dates: start: 2012
  2. LAMICTAL ODT [Suspect]
     Active Substance: LAMOTRIGINE
     Indication: EPILEPSY
     Dosage: 100MG  2XDAY  ORALLY
     Route: 048
     Dates: start: 2012
  3. LAMICTAL ODT [Suspect]
     Active Substance: LAMOTRIGINE
     Indication: PARTIAL SEIZURES
     Dosage: 100MG  2XDAY  ORALLY
     Route: 048
     Dates: start: 2012

REACTIONS (3)
  - Seizure [None]
  - Drug ineffective [None]
  - Insomnia [None]
